FAERS Safety Report 8134720-2 (Version None)
Quarter: 2012Q1

REPORT INFORMATION
  Report Type: 
  Country: None (occurrence: None)
  Receive Date: 20120214
  Receipt Date: 20120209
  Transmission Date: 20120608
  Serious: Yes (Hospitalization)
  Sender: FDA-Public Use
  Company Number: FR-PFIZER INC-2009208473

PATIENT
  Age: 90 Year
  Sex: Female

DRUGS (5)
  1. PRAZOSIN HCL [Suspect]
     Route: 048
  2. LASIX [Suspect]
     Dosage: 120 MG, 1X/DAY
     Route: 048
  3. CORDARONE [Suspect]
     Dosage: 0.5 DF, 5 TIMES/WEEK
  4. DITROPAN [Suspect]
     Route: 048
  5. NOCTRAN 10 [Suspect]
     Dosage: 5 MG, 1X/DAY

REACTIONS (2)
  - BRADYCARDIA [None]
  - FALL [None]
